FAERS Safety Report 11004302 (Version 1)
Quarter: 2015Q2

REPORT INFORMATION
  Report Type: Spontaneous
  Country: US (occurrence: US)
  Receive Date: 20150409
  Receipt Date: 20150409
  Transmission Date: 20150821
  Serious: Yes (Disabling)
  Sender: FDA-Public Use
  Company Number: US-APOTEX-2015AP008025

PATIENT
  Age: 75 Year
  Sex: Female

DRUGS (2)
  1. ROPINIROLE. [Concomitant]
     Active Substance: ROPINIROLE
     Indication: PARKINSON^S DISEASE
     Dosage: 1 MG, TID
     Route: 065
  2. CARBIDOPA AND LEVODOPA [Suspect]
     Active Substance: CARBIDOPA\LEVODOPA
     Indication: PARKINSON^S DISEASE
     Dosage: 1.5 DF, EVERY 4 HOURS
     Route: 048

REACTIONS (4)
  - Dyskinesia [Unknown]
  - Orthostatic hypotension [Unknown]
  - Syncope [Recovered/Resolved]
  - Drug effect incomplete [Unknown]
